FAERS Safety Report 14935930 (Version 6)
Quarter: 2020Q2

REPORT INFORMATION
  Report Type: Report from Study
  Country: JP (occurrence: JP)
  Receive Date: 20180524
  Receipt Date: 20200406
  Transmission Date: 20200713
  Serious: Yes (Hospitalization)
  Sender: FDA-Public Use
  Company Number: JP-GLAXOSMITHKLINE-JP2018JPN089931

PATIENT
  Age: 19 Year
  Sex: Female
  Weight: 50 kg

DRUGS (25)
  1. PREDONINE [Concomitant]
     Active Substance: PREDNISOLONE
     Dosage: 14 MG, 1D
     Dates: start: 20180521, end: 20180604
  2. MAGNESIUM OXIDE. [Concomitant]
     Active Substance: MAGNESIUM OXIDE
     Dosage: UNK
  3. MYSLEE [Concomitant]
     Active Substance: ZOLPIDEM TARTRATE
     Dosage: UNK
  4. PREDONINE [Concomitant]
     Active Substance: PREDNISOLONE
     Dosage: 15 MG, 1D
     Dates: start: 20180423, end: 20180520
  5. PREDONINE [Concomitant]
     Active Substance: PREDNISOLONE
     Dosage: 10 MG, 1D
     Dates: start: 20190122, end: 20190304
  6. BAKTAR [Concomitant]
     Active Substance: SULFAMETHOXAZOLE\TRIMETHOPRIM
     Dosage: UNK
  7. PREDONINE [Concomitant]
     Active Substance: PREDNISOLONE
     Dosage: 9 MG, 1D
     Dates: start: 20181016, end: 20181112
  8. PREDONINE [Concomitant]
     Active Substance: PREDNISOLONE
     Dosage: 8 MG, 1D
     Dates: start: 20181113, end: 20181210
  9. REMERON [Concomitant]
     Active Substance: MIRTAZAPINE
     Dosage: UNK
  10. PREDONINE [Concomitant]
     Active Substance: PREDNISOLONE
     Dosage: 12 MG, 1D
     Dates: start: 20180626, end: 20180820
  11. PREDONINE [Concomitant]
     Active Substance: PREDNISOLONE
     Dosage: 7 MG, 1D
     Dates: start: 20181211, end: 20190121
  12. BELIMUMAB SUBCUTANEOUS [Suspect]
     Active Substance: BELIMUMAB
     Indication: SYSTEMIC LUPUS ERYTHEMATOSUS
     Dosage: 200 MG, WE
     Route: 058
     Dates: start: 20180423, end: 20180702
  13. BELIMUMAB [Suspect]
     Active Substance: BELIMUMAB
     Dosage: 10 MG/KG, ONCE IN EVERY 4 WEEKS
     Route: 041
     Dates: start: 20181112, end: 20190204
  14. PREDONINE [Concomitant]
     Active Substance: PREDNISOLONE
     Indication: SYSTEMIC LUPUS ERYTHEMATOSUS
     Dosage: UNK
  15. PREDONINE [Concomitant]
     Active Substance: PREDNISOLONE
     Dosage: 10 MG, 1D
     Dates: start: 20180911, end: 20181015
  16. NAUZELIN [Concomitant]
     Active Substance: DOMPERIDONE
     Dosage: UNK
  17. CALONAL [Concomitant]
     Active Substance: ACETAMINOPHEN
     Dosage: UNK, PRN
  18. SEROQUEL [Concomitant]
     Active Substance: QUETIAPINE FUMARATE
     Dosage: UNK
  19. BELIMUMAB [Suspect]
     Active Substance: BELIMUMAB
     Indication: SYSTEMIC LUPUS ERYTHEMATOSUS
     Dosage: 10 MG/KG, ONCE IN EVERY 4 WEEKS
     Route: 041
     Dates: start: 20180723, end: 20181015
  20. PREDONINE [Concomitant]
     Active Substance: PREDNISOLONE
     Dosage: 13 MG, 1D
     Dates: start: 20180605, end: 20180625
  21. PREDNISOLONE. [Concomitant]
     Active Substance: PREDNISOLONE
     Dosage: 19 MG, 1D
  22. PREDONINE [Concomitant]
     Active Substance: PREDNISOLONE
     Dosage: 11 MG, 1D
     Dates: start: 20180821, end: 20180910
  23. NEXIUM [Concomitant]
     Active Substance: ESOMEPRAZOLE MAGNESIUM
     Dosage: UNK
  24. LUNESTA [Concomitant]
     Active Substance: ESZOPICLONE
     Dosage: UNK
  25. MEILAX [Concomitant]
     Active Substance: ETHYL LOFLAZEPATE
     Dosage: UNK

REACTIONS (3)
  - Urinary tract infection [Recovered/Resolved]
  - Injection site haemorrhage [Recovered/Resolved]
  - Diarrhoea [Recovered/Resolved]

NARRATIVE: CASE EVENT DATE: 201805
